FAERS Safety Report 6622064-7 (Version None)
Quarter: 2010Q1

REPORT INFORMATION
  Report Type: 
  Country: None (occurrence: None)
  Receive Date: 20100223
  Receipt Date: 20091026
  Transmission Date: 20100710
  Serious: No
  Sender: FDA-Public Use
  Company Number: 8053701

PATIENT
  Sex: Female
  Weight: 53.6 kg

DRUGS (2)
  1. CIMZIA [Suspect]
     Indication: CROHN'S DISEASE
     Dosage: (SUBCUTANEOUS)
     Route: 058
     Dates: start: 20090524
  2. MEDROL [Concomitant]

REACTIONS (3)
  - C-REACTIVE PROTEIN ABNORMAL [None]
  - DIARRHOEA [None]
  - DRUG INEFFECTIVE [None]
